FAERS Safety Report 8116674-8 (Version None)
Quarter: 2012Q1

REPORT INFORMATION
  Report Type: 
  Country: None (occurrence: None)
  Receive Date: 20120206
  Receipt Date: 20120124
  Transmission Date: 20120608
  Serious: Yes (Hospitalization)
  Sender: FDA-Public Use
  Company Number: PHHY2012JP008077

PATIENT
  Sex: Female

DRUGS (2)
  1. CYCLOPHOSPHAMIDE [Suspect]
  2. FEMARA [Suspect]
     Route: 048

REACTIONS (8)
  - BLOOD PRESSURE DECREASED [None]
  - HYPOAESTHESIA [None]
  - FALL [None]
  - MUSCULOSKELETAL STIFFNESS [None]
  - PAIN IN EXTREMITY [None]
  - FACIAL BONES FRACTURE [None]
  - ANAEMIA [None]
  - NIGHT SWEATS [None]
